FAERS Safety Report 14398325 (Version 1)
Quarter: 2018Q1

REPORT INFORMATION
  Report Type: Spontaneous
  Country: FR (occurrence: FR)
  Receive Date: 20180116
  Receipt Date: 20180116
  Transmission Date: 20180509
  Serious: Yes (Other)
  Sender: FDA-Public Use
  Company Number: FR-MERCK KGAA-2040120

PATIENT
  Sex: Female

DRUGS (1)
  1. NOVOTHYROX [Suspect]
     Active Substance: LEVOTHYROXINE SODIUM
     Indication: POST PROCEDURAL HYPOTHYROIDISM

REACTIONS (12)
  - Weight increased [None]
  - Weight decreased [None]
  - Decreased appetite [None]
  - Pain [None]
  - Suicide attempt [None]
  - Endometriosis [None]
  - Hypokinesia [None]
  - Extra dose administered [None]
  - Intentional self-injury [None]
  - Bulimia nervosa [None]
  - Autophobia [None]
  - Vomiting [None]

NARRATIVE: CASE EVENT DATE: 2016
